FAERS Safety Report 23485905 (Version 1)
Quarter: 2024Q1

REPORT INFORMATION
  Report Type: Spontaneous
  Country: GB (occurrence: GB)
  Receive Date: 20240206
  Receipt Date: 20240206
  Transmission Date: 20240409
  Serious: No
  Sender: FDA-Public Use
  Company Number: None

PATIENT
  Age: 70 Year
  Sex: Male

DRUGS (1)
  1. EZETIMIBE [Suspect]
     Active Substance: EZETIMIBE
     Indication: Hypercholesterolaemia
     Dosage: 10 MILLIGRAM (TABLET)
     Route: 048
     Dates: end: 20230712

REACTIONS (4)
  - Muscle spasms [Unknown]
  - Muscular weakness [Unknown]
  - Gait inability [Unknown]
  - Arthralgia [Unknown]
